FAERS Safety Report 23723508 (Version 1)
Quarter: 2024Q2

REPORT INFORMATION
  Report Type: Report from Study
  Country: US (occurrence: US)
  Receive Date: 20240409
  Receipt Date: 20240409
  Transmission Date: 20240715
  Serious: Yes (Death)
  Sender: FDA-Public Use
  Company Number: US-BAYER-2024A052346

PATIENT
  Age: 58 Year
  Sex: Female
  Weight: 100.68 kg

DRUGS (15)
  1. ADEMPAS [Suspect]
     Active Substance: RIOCIGUAT
     Indication: Pulmonary arterial hypertension
     Dosage: UNK
     Route: 048
     Dates: start: 20180613
  2. ADEMPAS [Suspect]
     Active Substance: RIOCIGUAT
     Indication: Pulmonary arterial hypertension
     Dosage: 2.5 MG, TID
     Route: 048
  3. AMOXICILLIN [Concomitant]
     Active Substance: AMOXICILLIN
  4. FUROSEMIDE [Concomitant]
     Active Substance: FUROSEMIDE
  5. FLUTICASONE PROPIONATE [Concomitant]
     Active Substance: FLUTICASONE PROPIONATE
  6. BIOTIN [Concomitant]
     Active Substance: BIOTIN
  7. XARELTO [Concomitant]
     Active Substance: RIVAROXABAN
  8. BREO ELLIPTA [Concomitant]
     Active Substance: FLUTICASONE FUROATE\VILANTEROL TRIFENATATE
  9. OPSUMIT [Concomitant]
     Active Substance: MACITENTAN
  10. COVID-19 VACCINE [Concomitant]
  11. VITAMINS NOS [Concomitant]
     Active Substance: VITAMINS
  12. ASCORBIC ACID;IRON [Concomitant]
  13. CALCIUM CARBONATE [Concomitant]
     Active Substance: CALCIUM CARBONATE
  14. IRON [Concomitant]
     Active Substance: IRON
  15. OMEPRAZOLE [Concomitant]
     Active Substance: OMEPRAZOLE

REACTIONS (1)
  - Death [Fatal]

NARRATIVE: CASE EVENT DATE: 20240401
